FAERS Safety Report 4837657-7 (Version None)
Quarter: 2005Q4

REPORT INFORMATION
  Report Type: 
  Country: None (occurrence: None)
  Receive Date: 20051123
  Receipt Date: 20051123
  Transmission Date: 20060501
  Serious: No
  Sender: FDA-Public Use
  Company Number: None

PATIENT
  Sex: Male
  Weight: 106.1417 kg

DRUGS (1)
  1. WELLBUTRIN [Suspect]

REACTIONS (6)
  - AGGRESSION [None]
  - ANGER [None]
  - DEPRESSED MOOD [None]
  - DRUG INEFFECTIVE [None]
  - IRRITABILITY [None]
  - THERAPEUTIC RESPONSE UNEXPECTED WITH DRUG SUBSTITUTION [None]
